FAERS Safety Report 6589799-6 (Version None)
Quarter: 2010Q1

REPORT INFORMATION
  Report Type: 
  Country: None (occurrence: None)
  Receive Date: 20100212
  Receipt Date: 20100201
  Transmission Date: 20100710
  Serious: Yes (Other)
  Sender: FDA-Public Use
  Company Number: AE-2009-384

PATIENT
  Age: 57 Year
  Sex: Female

DRUGS (1)
  1. ATENOLOL [Suspect]
     Indication: HYPERTENSION
     Dosage: 100 MG, QD

REACTIONS (3)
  - HEPATITIS ACUTE [None]
  - HEPATITIS TOXIC [None]
  - LIVER TRANSPLANT REJECTION [None]
